FAERS Safety Report 13090407 (Version 2)
Quarter: 2017Q1

REPORT INFORMATION
  Report Type: Spontaneous
  Country: BR (occurrence: BR)
  Receive Date: 20170105
  Receipt Date: 20170222
  Transmission Date: 20170428
  Serious: Yes (Other)
  Sender: FDA-Public Use
  Company Number: PHHY2016BR180044

PATIENT
  Sex: Female

DRUGS (1)
  1. AMOXICILLIN SODIUM+POTASSIUM CLAVULANATE SANDOZ [Suspect]
     Active Substance: AMOXICILLIN\CLAVULANATE POTASSIUM
     Indication: DENTAL IMPLANTATION
     Dosage: 1 DF, Q8H
     Route: 048
     Dates: start: 20161219

REACTIONS (3)
  - Deafness [Recovered/Resolved]
  - Candida infection [Recovered/Resolved]
  - Furuncle [Recovered/Resolved]
